FAERS Safety Report 4943815-3 (Version None)
Quarter: 2006Q1

REPORT INFORMATION
  Report Type: 
  Country: None (occurrence: None)
  Receive Date: 20060314
  Receipt Date: 20051003
  Transmission Date: 20060701
  Serious: Yes (Hospitalization)
  Sender: FDA-Public Use
  Company Number: US-MERCK-0510USA02286

PATIENT
  Age: 58 Year
  Sex: Female
  Weight: 87 kg

DRUGS (4)
  1. VIOXX [Suspect]
     Indication: ARTHRITIS
     Route: 048
     Dates: start: 20001201, end: 20020601
  2. VIOXX [Suspect]
     Route: 048
     Dates: start: 20001201, end: 20020601
  3. VIOXX [Suspect]
     Route: 048
     Dates: start: 20040301, end: 20040501
  4. VIOXX [Suspect]
     Route: 048
     Dates: start: 20040301, end: 20040501

REACTIONS (17)
  - ABDOMINAL PAIN UPPER [None]
  - ANGINA UNSTABLE [None]
  - BACK PAIN [None]
  - CHEST PAIN [None]
  - CORONARY ARTERY DISEASE [None]
  - CORONARY ARTERY SURGERY [None]
  - CYSTITIS [None]
  - DIARRHOEA [None]
  - DYSPNOEA [None]
  - MYOCARDIAL INFARCTION [None]
  - PAIN IN EXTREMITY [None]
  - PELVIC PAIN [None]
  - PERIPHERAL VASCULAR DISORDER [None]
  - RASH [None]
  - SYNCOPE VASOVAGAL [None]
  - TACHYCARDIA [None]
  - VENTRICULAR DYSFUNCTION [None]
